FAERS Safety Report 4927957-4 (Version None)
Quarter: 2006Q1

REPORT INFORMATION
  Report Type: 
  Country: None (occurrence: None)
  Receive Date: 20060223
  Receipt Date: 20060210
  Transmission Date: 20060701
  Serious: Yes (Hospitalization)
  Sender: FDA-Public Use
  Company Number: 2006021081

PATIENT
  Age: 69 Year
  Sex: Male

DRUGS (6)
  1. ATORVASTATIN CALCIUM [Suspect]
     Indication: ILL-DEFINED DISORDER
  2. NORTRIPTYLINE HCL [Suspect]
     Indication: ILL-DEFINED DISORDER
  3. ASPIRIN [Suspect]
     Indication: ILL-DEFINED DISORDER
  4. ATENOLOL [Suspect]
     Indication: ILL-DEFINED DISORDER
  5. FELODPINE (FELODIPINE) [Suspect]
     Indication: ILL-DEFINED DISORDER
  6. RAMIPRIL [Suspect]
     Indication: HYPERTENSION
     Dates: start: 19980101

REACTIONS (6)
  - DROOLING [None]
  - DYSKINESIA [None]
  - SALIVARY HYPERSECRETION [None]
  - SWELLING FACE [None]
  - SWOLLEN TONGUE [None]
  - VOCAL CORD POLYPECTOMY [None]
